FAERS Safety Report 7329684-5 (Version None)
Quarter: 2011Q1

REPORT INFORMATION
  Report Type: 
  Country: None (occurrence: None)
  Receive Date: 20110303
  Receipt Date: 20110203
  Transmission Date: 20110831
  Serious: Yes (Other)
  Sender: FDA-Public Use
  Company Number: IL-NAPPMUNDI-GBR-2011-0007747

PATIENT
  Age: 30 Year
  Sex: Male

DRUGS (1)
  1. BUTRANS 5MG TRANSDERMAL PATCH [Suspect]
     Indication: PAIN
     Dosage: 5 MCG, Q1H
     Route: 062

REACTIONS (1)
  - LOSS OF CONSCIOUSNESS [None]
